FAERS Safety Report 4938970-5 (Version None)
Quarter: 2006Q1

REPORT INFORMATION
  Report Type: 
  Country: None (occurrence: None)
  Receive Date: 20060309
  Receipt Date: 20060301
  Transmission Date: 20060701
  Serious: Yes (Other)
  Sender: FDA-Public Use
  Company Number: US-MERCK-0603USA00454

PATIENT
  Age: 74 Year
  Sex: Male
  Weight: 70 kg

DRUGS (7)
  1. VIOXX [Suspect]
     Indication: RHEUMATOID ARTHRITIS
     Route: 048
     Dates: start: 19990101, end: 20040101
  2. PLAVIX [Concomitant]
     Route: 065
  3. ALTACE [Concomitant]
     Route: 065
  4. LANOXIN [Concomitant]
     Route: 065
  5. MECLIZINE [Concomitant]
     Route: 065
  6. LIPITOR [Concomitant]
     Route: 065
  7. COREG [Concomitant]
     Route: 065

REACTIONS (6)
  - BLOOD URINE PRESENT [None]
  - CARDIAC DISORDER [None]
  - CHEST PAIN [None]
  - MIGRAINE [None]
  - MYOCARDIAL INFARCTION [None]
  - THROMBOSIS [None]
